FAERS Safety Report 8119045-3 (Version None)
Quarter: 2011Q4

REPORT INFORMATION
  Report Type: 
  Country: None (occurrence: None)
  Receive Date: 20111227
  Receipt Date: 20110921
  Transmission Date: 20120403
  Serious: No
  Sender: FDA-Public Use
  Company Number: PHEH2011US05014

PATIENT
  Age: 50 Year
  Sex: Male
  Weight: 74.8 kg

DRUGS (8)
  1. GILENYA [Suspect]
     Dosage: 0.5 MG, QD, ORAL
     Route: 048
  2. BACLOFEN [Concomitant]
  3. VITAMIN B12 [Concomitant]
  4. SOMA [Concomitant]
  5. OXYCODONE HCL [Concomitant]
  6. EFFEXOR [Concomitant]
  7. TAMSULOSIN HCL [Concomitant]
  8. PROVIGIL [Concomitant]

REACTIONS (1)
  - FATIGUE [None]
